FAERS Safety Report 13000304 (Version 2)
Quarter: 2017Q1

REPORT INFORMATION
  Report Type: Report from Study
  Country: SI (occurrence: SI)
  Receive Date: 20161206
  Receipt Date: 20170110
  Transmission Date: 20170428
  Serious: Yes (Hospitalization)
  Sender: FDA-Public Use
  Company Number: SI-AMGEN-SVNCT2016169259

PATIENT
  Age: 67 Year
  Sex: Male

DRUGS (7)
  1. PREXANIL [Suspect]
     Active Substance: PERINDOPRIL
     Indication: INFARCTION
     Dosage: 4 MG, BID
     Route: 048
     Dates: end: 20161115
  2. CISPLATIN. [Suspect]
     Active Substance: CISPLATIN
     Indication: NON-SMALL CELL LUNG CANCER STAGE IV
     Dosage: 10 MG, Q3WK
     Route: 042
     Dates: start: 20161110
  3. PREXANIL [Suspect]
     Active Substance: PERINDOPRIL
     Indication: HYPERTENSION
  4. CONCOR [Suspect]
     Active Substance: BISOPROLOL FUMARATE
     Indication: INFARCTION
     Dosage: 2.5 MG, BID
     Route: 048
     Dates: end: 20161115
  5. CONCOR [Suspect]
     Active Substance: BISOPROLOL FUMARATE
     Indication: HYPERTENSION
  6. DENOSUMAB [Suspect]
     Active Substance: DENOSUMAB
     Indication: NON-SMALL CELL LUNG CANCER STAGE IV
     Dosage: 120 MG, UNK
     Route: 058
     Dates: start: 20161109
  7. PEMETREXED [Suspect]
     Active Substance: PEMETREXED
     Indication: NON-SMALL CELL LUNG CANCER STAGE IV
     Dosage: 900 MG, Q3WK
     Route: 042
     Dates: start: 20161110

REACTIONS (1)
  - Syncope [Recovered/Resolved]

NARRATIVE: CASE EVENT DATE: 20161115
